FAERS Safety Report 6666922-6 (Version None)
Quarter: 2010Q2

REPORT INFORMATION
  Report Type: 
  Country: None (occurrence: None)
  Receive Date: 20100405
  Receipt Date: 20100322
  Transmission Date: 20101027
  Serious: Yes (Other)
  Sender: FDA-Public Use
  Company Number: PHHY2010GB03494

PATIENT
  Sex: Male

DRUGS (20)
  1. RASILEZ [Suspect]
     Indication: HYPERTENSION
     Dosage: 150 MG, QD
     Dates: start: 20091123, end: 20091208
  2. VALSARTAN [Concomitant]
     Dosage: UNK
     Dates: end: 20091208
  3. SPIRONOLACTONE [Concomitant]
     Dosage: UNK
     Dates: end: 20091208
  4. BISOPROLOL FUMARATE [Concomitant]
     Dosage: 10 MG, QD
  5. CO-DYDRAMOL [Concomitant]
     Dosage: 1-2 TABLETS (10/500 )
  6. DOXAZOSIN MESYLATE [Concomitant]
     Dosage: 8 MG, QD
  7. FELODIPINE [Concomitant]
     Dosage: 10 MG, QD
  8. FERROUS SULFATE TAB [Concomitant]
     Dosage: 200 MG, TID
  9. FUROSEMIDE [Concomitant]
     Dosage: 2 TABLETS (40 MG) DAILY
  10. GLYCERYL TRINITRATE [Concomitant]
     Dosage: CFC-FREE PUMP SPRAY 400 MCG AS DIRECTED
  11. HUMALOG MIX [Concomitant]
     Dosage: CARTRIDGES (3MI) 100 UNITS/ML AD
  12. HUMAPEN LUXURA [Concomitant]
     Dosage: RE-USUABLE 3 ML 1-60 UNITS AD
  13. LANSOPRAZOLE [Concomitant]
     Dosage: 30 MG, QD
  14. MOXONIDINE [Concomitant]
     Dosage: 400 UG, QD
  15. PRAVASTATIN [Concomitant]
     Dosage: 40 MG, QD
  16. ASCENSIA AUTODISC TEST [Concomitant]
     Dosage: AUTODISC TEST SENSOR DISC OF 10 STRIPS
  17. BD SAFE-CLIP DEVICE [Concomitant]
  18. BD-MICROFINE [Concomitant]
     Dosage: BD-MICROFINE + NEEDLES FOR INSULIN PENS 8MM/31 GAUGE
  19. INFLUENZA VIRUS VACCINE [Concomitant]
     Dosage: 1 DF, UNK
     Dates: start: 20091114
  20. METFORMIN HYDROCHLORIDE [Concomitant]
     Dosage: 850 MG, TID
     Route: 048

REACTIONS (5)
  - BLOOD CREATININE INCREASED [None]
  - GLOMERULAR FILTRATION RATE DECREASED [None]
  - MICROALBUMINURIA [None]
  - RENAL FAILURE ACUTE [None]
  - URINE ALBUMIN/CREATININE RATIO INCREASED [None]
